FAERS Safety Report 8589932-0 (Version None)
Quarter: 2012Q3

REPORT INFORMATION
  Report Type: 
  Country: None (occurrence: None)
  Receive Date: 20120813
  Receipt Date: 20120803
  Transmission Date: 20120928
  Serious: Yes (Life-Threatening, Disabling)
  Sender: FDA-Public Use
  Company Number: FR-ROCHE-1098896

PATIENT
  Sex: Male
  Weight: 55 kg

DRUGS (3)
  1. ENOXAPARIN SODIUM [Suspect]
     Indication: ACUTE MYOCARDIAL INFARCTION
     Dosage: INTRAVENOUS BOLUS+ SUBCUTANEOUS
  2. TENECTEPLASE [Suspect]
     Indication: ACUTE MYOCARDIAL INFARCTION
  3. CLOPIDOGREL BISULFATE [Suspect]
     Indication: ACUTE MYOCARDIAL INFARCTION
     Route: 048

REACTIONS (2)
  - HYPOTENSION [None]
  - RENAL FAILURE [None]
